FAERS Safety Report 17326651 (Version 1)
Quarter: 2020Q1

REPORT INFORMATION
  Report Type: Spontaneous
  Country: JP (occurrence: JP)
  Receive Date: 20200127
  Receipt Date: 20200127
  Transmission Date: 20200409
  Serious: Yes (Hospitalization)
  Sender: FDA-Public Use
  Company Number: JP-BAYER-2020-011150

PATIENT
  Age: 60 Year
  Sex: Female

DRUGS (1)
  1. NEXAVAR [Suspect]
     Active Substance: SORAFENIB
     Dosage: ABOUT 3 WEEKS, 200MG DAILY
     Dates: start: 201911

REACTIONS (2)
  - Off label use [None]
  - Hepatitis fulminant [None]

NARRATIVE: CASE EVENT DATE: 201911
